FAERS Safety Report 17336053 (Version 1)
Quarter: 2020Q1

REPORT INFORMATION
  Report Type: Spontaneous
  Country: FR (occurrence: FR)
  Receive Date: 20200128
  Receipt Date: 20200128
  Transmission Date: 20200409
  Serious: Yes (Other)
  Sender: FDA-Public Use
  Company Number: FR-MYLANLABS-2020M1009118

PATIENT
  Age: 15 Year
  Sex: Male
  Weight: 75 kg

DRUGS (6)
  1. VANCOMYCINE SANDOZ [Suspect]
     Active Substance: VANCOMYCIN
     Indication: CELLULITIS
     Dosage: 1500 MILLIGRAM, QD
     Route: 042
     Dates: start: 20190814, end: 20190829
  2. GENTAMICINE PANPHARMA [Suspect]
     Active Substance: GENTAMICIN
     Indication: CELLULITIS
     Dosage: 375 MILLIGRAM, QD
     Route: 042
     Dates: start: 20190823, end: 20190827
  3. HYDROCORTISONE UPJOHN [Concomitant]
     Active Substance: HYDROCORTISONE
     Dosage: UNK
     Route: 042
  4. DALACINE                           /00166003/ [Suspect]
     Active Substance: CLINDAMYCIN
     Indication: CELLULITIS
     Dosage: 1800 MILLIGRAM, QD
     Route: 042
     Dates: start: 20190826
  5. IOMERON [Suspect]
     Active Substance: IOMEPROL
     Indication: COMPUTERISED TOMOGRAM
     Dosage: 1 DOSAGE FORM, TOTAL
     Route: 042
     Dates: start: 20190826, end: 20190826
  6. PIPERACILLIN AND TAZOBACTAM [Suspect]
     Active Substance: PIPERACILLIN SODIUM\TAZOBACTAM SODIUM
     Indication: CELLULITIS
     Dosage: 3 DOSAGE FORM, QD
     Route: 042
     Dates: start: 20190826

REACTIONS (1)
  - Renal tubular necrosis [Recovering/Resolving]

NARRATIVE: CASE EVENT DATE: 20190829
